FAERS Safety Report 17170446 (Version 5)
Quarter: 2024Q3

REPORT INFORMATION
  Report Type: Report from Study
  Country: US (occurrence: US)
  Receive Date: 20191218
  Receipt Date: 20240926
  Transmission Date: 20241017
  Serious: Yes (Hospitalization, Other)
  Sender: UCB
  Company Number: US-UCBSA-2019053129

PATIENT
  Age: 0 Year
  Sex: Male
  Weight: 3.3 kg

DRUGS (20)
  1. CERTOLIZUMAB PEGOL [Suspect]
     Active Substance: CERTOLIZUMAB PEGOL
     Indication: Juvenile idiopathic arthritis
     Dosage: 200 MILLIGRAM, 2X/MONTH
     Route: 064
     Dates: start: 20180915, end: 20190825
  2. CERTOLIZUMAB PEGOL [Suspect]
     Active Substance: CERTOLIZUMAB PEGOL
     Indication: Rheumatoid arthritis
     Dosage: UNK
     Route: 063
  3. ASPIRIN [Concomitant]
     Active Substance: ASPIRIN
     Indication: Abortion spontaneous
     Dosage: 81 MILLIGRAM, ONCE DAILY (QD)
     Route: 064
     Dates: start: 20181101, end: 20190825
  4. CALCIUM CITRATE [Concomitant]
     Active Substance: CALCIUM CITRATE
     Indication: Product used for unknown indication
     Dosage: 600 MILLIGRAM, ONCE DAILY (QD) TO OFF BALANCE PREDNISONE USE
     Route: 064
     Dates: start: 20190603, end: 20190825
  5. DIETARY SUPPLEMENT [Concomitant]
     Active Substance: DIETARY SUPPLEMENT
     Indication: Product used for unknown indication
     Dosage: 1 DOSAGE FORM, ONCE DAILY (QD)
     Route: 064
     Dates: start: 20160701, end: 20190825
  6. VENLAFAXINE HYDROCHLORIDE [Concomitant]
     Active Substance: VENLAFAXINE HYDROCHLORIDE
     Indication: Depression
     Dosage: 187.5 MILLIGRAM, ONCE DAILY (QD)
     Route: 064
     Dates: start: 20181123, end: 20190825
  7. INFLUENZA VIRUS VACCINE [Concomitant]
     Active Substance: INFLUENZA VIRUS VACCINE
     Indication: Immunisation
     Dosage: 1 DOSAGE FORM, ONE TIME DOSE
     Route: 064
     Dates: start: 20181030, end: 20181030
  8. FOLLISTIM [Concomitant]
     Active Substance: FOLLITROPIN
     Indication: Infertility
     Dosage: 100 INTERNATIONAL UNIT, ONCE DAILY (QD)
     Route: 064
     Dates: start: 20181127, end: 20181204
  9. HEPARIN [Concomitant]
     Active Substance: HEPARIN SODIUM
     Indication: Artificial insemination
     Dosage: 5000 INTERNATIONAL UNIT, 2X/DAY (BID)
     Route: 064
     Dates: start: 20190114, end: 20190311
  10. IRON [Concomitant]
     Active Substance: IRON
     Indication: Blood iron decreased
     Dosage: 1 DOSAGE FORM, ONCE DAILY (QD)
     Route: 064
     Dates: start: 20190715, end: 20190715
  11. OVIDREL [Concomitant]
     Active Substance: CHORIOGONADOTROPIN ALFA
     Indication: Ovulation disorder
     Dosage: 5000 INTERNATIONAL UNIT, ONCE DAILY (QD)
     Route: 064
     Dates: start: 20181205, end: 20181205
  12. PLAQUENIL [Concomitant]
     Active Substance: HYDROXYCHLOROQUINE SULFATE
     Indication: Rheumatoid arthritis
     Dosage: 200 MILLIGRAM, 2X/DAY (BID)
     Route: 064
     Dates: start: 20020701, end: 20190825
  13. PREDNISONE [Concomitant]
     Active Substance: PREDNISONE
     Indication: Rheumatoid arthritis
     Dosage: 6 MILLIGRAM, ONCE DAILY (QD)
     Route: 064
     Dates: start: 20140115, end: 20190410
  14. PREDNISONE [Concomitant]
     Active Substance: PREDNISONE
     Dosage: 3 MILLIGRAM, ONCE DAILY (QD)
     Route: 064
     Dates: start: 20190411, end: 20190623
  15. PREDNISONE [Concomitant]
     Active Substance: PREDNISONE
     Dosage: 5 MILLIGRAM, ONCE DAILY (QD)
     Route: 064
     Dates: start: 20190624, end: 20190825
  16. MINERALS\VITAMINS [Concomitant]
     Active Substance: MINERALS\VITAMINS
     Indication: Product used for unknown indication
     Dosage: 1 DOSAGE FORM, ONCE DAILY (QD)
     Route: 064
     Dates: start: 20160701, end: 20190825
  17. PROGESTERONE [Concomitant]
     Active Substance: PROGESTERONE
     Indication: Artificial insemination
     Dosage: 50 MILLIGRAM, 2X/DAY (BID)
     Route: 064
     Dates: start: 20181209, end: 20190218
  18. DIPHTHERIA AND TETANUS TOXOIDS AND ACELLULAR PERTUSSIS VACCINE ADSORBE [Concomitant]
     Active Substance: DIPHTHERIA AND TETANUS TOXOIDS AND ACELLULAR PERTUSSIS VACCINE ADSORBED
     Indication: Product used for unknown indication
     Dosage: 1 DOSAGE FORM, ONCE DAILY (QD)
     Route: 064
     Dates: start: 20190716, end: 20190716
  19. TYLENOL EXTRA STRENGTH [Concomitant]
     Active Substance: ACETAMINOPHEN
     Indication: Arthralgia
     Dosage: 2 DOSAGE FORM, WEEKLY (QW)
     Route: 064
     Dates: start: 20190802, end: 20190825
  20. EFFEXOR XR [Concomitant]
     Active Substance: VENLAFAXINE HYDROCHLORIDE
     Indication: Depression
     Dosage: 187.5 MILLIGRAM PER DAY
     Route: 064
     Dates: start: 20181123, end: 20190825

REACTIONS (9)
  - Dehydration [Recovered/Resolved]
  - Blood calcium increased [Recovered/Resolved]
  - Rhinovirus infection [Not Recovered/Not Resolved]
  - Metapneumovirus infection [Not Recovered/Not Resolved]
  - Staphylococcal infection [Recovered/Resolved]
  - Respiratory failure [Unknown]
  - Maternal exposure before pregnancy [Unknown]
  - Maternal exposure during pregnancy [Unknown]
  - Exposure via breast milk [Unknown]

NARRATIVE: CASE EVENT DATE: 20181207
